FAERS Safety Report 10838024 (Version 2)
Quarter: 2015Q1

REPORT INFORMATION
  Report Type: Report from Study
  Country: US (occurrence: US)
  Receive Date: 20150219
  Receipt Date: 20150224
  Transmission Date: 20150721
  Serious: Yes (Hospitalization, Other)
  Sender: FDA-Public Use
  Company Number: US-GLAXOSMITHKLINE-A1040337A

PATIENT
  Age: 66 Year
  Sex: Male
  Weight: 65.1 kg

DRUGS (2)
  1. DABRAFENIB CAPSULE [Suspect]
     Active Substance: DABRAFENIB
     Indication: NODULAR MELANOMA
     Dosage: 150 MG, BID
     Route: 048
     Dates: start: 20110224
  2. TRAMETINIB TABLET [Suspect]
     Active Substance: TRAMETINIB
     Indication: NODULAR MELANOMA
     Dosage: 2 MG, QD
     Route: 048
     Dates: start: 20130219

REACTIONS (3)
  - Pyrexia [Recovered/Resolved]
  - Pneumonia [Recovered/Resolved]
  - Chills [Recovered/Resolved]

NARRATIVE: CASE EVENT DATE: 20130829
